FAERS Safety Report 14135622 (Version 2)
Quarter: 2018Q1

REPORT INFORMATION
  Report Type: Report from Study
  Country: US (occurrence: US)
  Receive Date: 20171027
  Receipt Date: 20180105
  Transmission Date: 20180508
  Serious: Yes (Other)
  Sender: FDA-Public Use
  Company Number: US-AMGEN-USASL2017118236

PATIENT
  Age: 71 Year
  Sex: Female

DRUGS (3)
  1. REPATHA [Suspect]
     Active Substance: EVOLOCUMAB
     Indication: HYPERCHOLESTEROLAEMIA
  2. REPATHA [Suspect]
     Active Substance: EVOLOCUMAB
     Indication: CORONARY ARTERY DISEASE
     Dosage: 140 MG, Q2WK
     Route: 065
  3. REPATHA [Suspect]
     Active Substance: EVOLOCUMAB
     Indication: BLOOD CHOLESTEROL INCREASED
     Dosage: 140 MG, Q3WK
     Route: 065

REACTIONS (15)
  - Fatigue [Unknown]
  - Off label use [Unknown]
  - Abnormal dreams [Unknown]
  - Hypersomnia [Unknown]
  - Pruritus [Unknown]
  - Memory impairment [Unknown]
  - Energy increased [Unknown]
  - Injection site pain [Unknown]
  - Restless legs syndrome [Unknown]
  - Migraine with aura [Unknown]
  - Diabetes mellitus [Not Recovered/Not Resolved]
  - Mood altered [Unknown]
  - Drug effect decreased [Unknown]
  - Blood glucose fluctuation [Unknown]
  - Headache [Unknown]

NARRATIVE: CASE EVENT DATE: 2017
